FAERS Safety Report 6444432-9 (Version None)
Quarter: 2009Q4

REPORT INFORMATION
  Report Type: 
  Country: None (occurrence: None)
  Receive Date: 20091110
  Receipt Date: 20090814
  Transmission Date: 20100525
  Serious: Yes (Other)
  Sender: FDA-Public Use
  Company Number: 1000007851

PATIENT
  Age: 57 Year
  Sex: Female

DRUGS (10)
  1. SAVELLA [Suspect]
     Dosage: SEE IMAGE
     Route: 048
     Dates: start: 20090601, end: 20090601
  2. SAVELLA [Suspect]
     Dosage: SEE IMAGE
     Route: 048
     Dates: start: 20090601, end: 20090601
  3. SAVELLA [Suspect]
     Dosage: SEE IMAGE
     Route: 048
     Dates: start: 20090601, end: 20090601
  4. SAVELLA [Suspect]
     Dosage: SEE IMAGE
     Route: 048
     Dates: start: 20090601
  5. XANAX [Concomitant]
  6. TEGRETOL [Concomitant]
  7. AMBIEN [Concomitant]
  8. TRAZODONE HCL [Concomitant]
  9. METFORMIN HCL [Concomitant]
  10. CRESTOR [Concomitant]

REACTIONS (2)
  - DEPRESSION [None]
  - SUICIDAL IDEATION [None]
